FAERS Safety Report 7443163-6 (Version None)
Quarter: 2011Q2

REPORT INFORMATION
  Report Type: 
  Country: None (occurrence: None)
  Receive Date: 20110428
  Receipt Date: 20110422
  Transmission Date: 20111010
  Serious: Yes (Death, Congenital Anomaly)
  Sender: FDA-Public Use
  Company Number: A0924614A

PATIENT
  Sex: Female

DRUGS (4)
  1. PAXIL [Suspect]
     Route: 064
  2. PRENATAL VITAMINS [Concomitant]
     Route: 064
  3. TORADOL [Concomitant]
     Route: 064
  4. PHENERGAN HCL [Concomitant]
     Route: 064

REACTIONS (2)
  - DRUG EXPOSURE DURING PREGNANCY [None]
  - ANENCEPHALY [None]
